FAERS Safety Report 4683664-7 (Version None)
Quarter: 2005Q2

REPORT INFORMATION
  Report Type: 
  Country: None (occurrence: None)
  Receive Date: 20050602
  Receipt Date: 20050314
  Transmission Date: 20051028
  Serious: Yes (Other)
  Sender: FDA-Public Use
  Company Number: 200510046BWH

PATIENT
  Age: 32 Year
  Sex: Male

DRUGS (2)
  1. LEVITRA [Suspect]
  2. PDE-S INHIIBITOR [Concomitant]

REACTIONS (1)
  - PRIAPISM [None]
